FAERS Safety Report 16094343 (Version 5)
Quarter: 2019Q4

REPORT INFORMATION
  Report Type: Spontaneous
  Country: US (occurrence: US)
  Receive Date: 20190320
  Receipt Date: 20191119
  Transmission Date: 20200122
  Serious: Yes (Hospitalization, Other)
  Sender: FDA-Public Use
  Company Number: US-PFIZER INC-2019116348

PATIENT
  Age: 66 Year
  Sex: Female

DRUGS (22)
  1. PRESERVISION AREDS 2 [Concomitant]
     Active Substance: MINERALS\VITAMINS
     Dosage: 1 DF, 2X/DAY (TAKE 1 TABLET BY MOUTH TWO TIMES A DAY; MORNING)
     Route: 048
  2. CALTRATE WITH VITAMIN D [Concomitant]
     Active Substance: CALCIUM CARBONATE\CHOLECALCIFEROL
     Dosage: 1 DF, DAILY (TAKE 1 TABLET BY MOUTH DAILY AT 6PM; MORNING)
     Route: 048
  3. COREG [Concomitant]
     Active Substance: CARVEDILOL
     Dosage: 25 MG, 2X/DAY (TAKE 1 TAB BY MOUTH TWO TIMES A DAY, MORNING,BEDTIME)
     Route: 048
  4. WELLBUTRIN SR [Concomitant]
     Active Substance: BUPROPION HYDROCHLORIDE
     Dosage: 150 MG, 2X/DAY (TAKE 1 TAB BY MOUTH TWO TIMES A DAY; MORNING, BEDTIME)
     Route: 048
  5. VITA D3 [Concomitant]
     Dosage: 400 IU, DAILY  (TAKE 400 UNITS BY MOUTH DAILY)
     Route: 048
  6. CYMBALTA [Concomitant]
     Active Substance: DULOXETINE HYDROCHLORIDE
     Dosage: 60 MG, 2X/DAY (TAKE 60 MG BY MOUTH TWO TIMES A DAY)
     Route: 048
  7. XELJANZ XR [Suspect]
     Active Substance: TOFACITINIB CITRATE
     Dosage: 11 MG, DAILY
     Dates: start: 201902, end: 2019
  8. PRILOSEC [Concomitant]
     Active Substance: OMEPRAZOLE MAGNESIUM
     Dosage: 40 MG, DAILY (TK 1 C PO QD 45 MIN B BRE,MORNING)
     Route: 048
  9. PERCOCET [Concomitant]
     Active Substance: ACETAMINOPHEN\OXYCODONE HYDROCHLORIDE
     Dosage: 1 DF, AS NEEDED [OXYCODONE: 5MG] [ACETAMINOPHEN: 325 MG(TAKE 1 TAB BY MOUTH EVERY 6 HOURS AS NEEDED)
     Route: 048
  10. MOBIC [Concomitant]
     Active Substance: MELOXICAM
     Dosage: 7.5 MG, DAILY (TAKE 7.5 MG BY MOUTH DAILY)
     Route: 048
  11. PHENERGAN [Concomitant]
     Active Substance: PROMETHAZINE HYDROCHLORIDE
     Indication: NAUSEA
     Dosage: 12.5 MG, AS NEEDED (TAKE 1 TAB BY MOUTH EVERY 6 HOURS AS NEEDED)
     Route: 048
  12. KENALOG [Concomitant]
     Active Substance: TRIAMCINOLONE ACETONIDE
     Dosage: UNK UNK, AS NEEDED NEEDED (APPLY TWO TIMES A DAY AS NEEDED)
     Route: 061
  13. TUMS [Concomitant]
     Active Substance: CALCIUM CARBONATE
     Dosage: UNK UNK, AS NEEDED (TAKE BY MOUTH EVERY 6 HOURS AS NEEDED)
     Route: 048
  14. NEURONTIN [Concomitant]
     Active Substance: GABAPENTIN
     Dosage: 300 MG, DAILY (TAKE 300 MG BY MOUTH DAILY)
     Route: 048
  15. PHENERGAN [Concomitant]
     Active Substance: PROMETHAZINE HYDROCHLORIDE
     Indication: VOMITING
  16. THERAGRAN-M [ASCORBIC ACID;CALCIUM CARBONATE;COPPER;CYANOCOBALAMIN;ERG [Concomitant]
     Dosage: 1 DF, DAILY (TAKE 1 TAB BY MOUTH DAILY.; MORNING)
     Route: 048
  17. NORCO [Concomitant]
     Active Substance: ACETAMINOPHEN\HYDROCODONE BITARTRATE
     Dosage: UNK, 2X/DAY  [HYDROCODONE: 5 MG] [ACETAMINOPHEN: 325 MG]; (EVENING: 1/2, BEDTIME: 1/2)
     Route: 048
  18. PRINIVIL [Concomitant]
     Active Substance: LISINOPRIL
     Dosage: 20 MG, DAILY (TAKE 1 TAB BY MOUTH DAILY)
     Route: 048
  19. ZESTRIL [Concomitant]
     Active Substance: LISINOPRIL
     Dosage: 20 MG, DAILY (TAKE 1 TAB BY MOUTH DAILY)
     Route: 048
  20. ZANTAC [Concomitant]
     Active Substance: RANITIDINE HYDROCHLORIDE
     Dosage: 300 MG, 1X/DAY (TAKE 1 CAPSULE BY MOUTH AT BEDTIME)
     Route: 048
  21. ATIVAN [Concomitant]
     Active Substance: LORAZEPAM
     Dosage: 0.5 MG, AS NEEDED (TAKE 1 TABLET BY MOUTH TWO TIMES A DAY AS NEEDED)
     Route: 048
  22. ZYRTEC [Concomitant]
     Active Substance: CETIRIZINE HYDROCHLORIDE
     Dosage: 10 MG, DAILY (TAKE 1 TAB BY MOUTH DAILY; MORNING)
     Route: 048

REACTIONS (2)
  - Uterine polyp [Recovered/Resolved]
  - Fatigue [Recovered/Resolved]

NARRATIVE: CASE EVENT DATE: 2019
